FAERS Safety Report 23503751 (Version 1)
Quarter: 2024Q1

REPORT INFORMATION
  Report Type: Spontaneous
  Country: US (occurrence: None)
  Receive Date: 20240208
  Receipt Date: 20240208
  Transmission Date: 20240409
  Serious: Yes (Life-Threatening, Disabling, Other)
  Sender: FDA-Public Use
  Company Number: None

PATIENT
  Age: 43 Year
  Sex: Female
  Weight: 48.99 kg

DRUGS (1)
  1. EOVIST [Suspect]
     Active Substance: GADOXETATE DISODIUM

REACTIONS (16)
  - Contrast media reaction [None]
  - Dose calculation error [None]
  - Incorrect dose administered [None]
  - Nausea [None]
  - Vision blurred [None]
  - Brain fog [None]
  - Arthralgia [None]
  - Myalgia [None]
  - Musculoskeletal stiffness [None]
  - Dyspnoea [None]
  - Tendon pain [None]
  - Hypotension [None]
  - Inflammation [None]
  - Mast cell activation syndrome [None]
  - Idiopathic environmental intolerance [None]
  - Toxicity to various agents [None]

NARRATIVE: CASE EVENT DATE: 20230616
